FAERS Safety Report 4315185-5 (Version None)
Quarter: 2004Q1

REPORT INFORMATION
  Report Type: 
  Country: None (occurrence: None)
  Receive Date: 20040310
  Receipt Date: 20040225
  Transmission Date: 20041129
  Serious: Yes (Other)
  Sender: FDA-Public Use
  Company Number: WAES 0402DEU00169

PATIENT
  Age: 68 Year
  Sex: Female
  Weight: 68 kg

DRUGS (4)
  1. ATORVASTATIN CALCIUM [Concomitant]
     Route: 048
     Dates: start: 20030101
  2. BISOPROLOL [Concomitant]
     Route: 048
  3. DICLOFENAC SODIUM [Concomitant]
  4. ZETIA [Suspect]
     Indication: HYPERCHOLESTEROLAEMIA
     Route: 048
     Dates: start: 20031201, end: 20040102

REACTIONS (4)
  - ERYTHEMA [None]
  - PRURITUS [None]
  - SKIN DISORDER [None]
  - SWELLING [None]
